FAERS Safety Report 13947315 (Version 2)
Quarter: 2017Q3

REPORT INFORMATION
  Report Type: Report from Study
  Country: US (occurrence: US)
  Receive Date: 20170908
  Receipt Date: 20170911
  Transmission Date: 20171128
  Serious: Yes (Death, Hospitalization, Other)
  Sender: FDA-Public Use
  Company Number: US-ROCHE-1987152

PATIENT
  Age: 70 Year
  Sex: Female
  Weight: 75.36 kg

DRUGS (1)
  1. ACTEMRA [Suspect]
     Active Substance: TOCILIZUMAB
     Indication: RHEUMATOID ARTHRITIS
     Dosage: NO
     Route: 042
     Dates: start: 2017, end: 20170615

REACTIONS (9)
  - Lung neoplasm malignant [Unknown]
  - Abdominal pain [Unknown]
  - Multiple organ dysfunction syndrome [Unknown]
  - Liver function test increased [Unknown]
  - Brain neoplasm malignant [Unknown]
  - Jaundice [Unknown]
  - Hepatic failure [Fatal]
  - Hepatic cancer [Unknown]
  - Dyspnoea [Unknown]

NARRATIVE: CASE EVENT DATE: 20170727
